FAERS Safety Report 10461390 (Version 1)
Quarter: 2014Q3

REPORT INFORMATION
  Report Type: Spontaneous
  Country: FR (occurrence: FR)
  Receive Date: 20140918
  Receipt Date: 20140918
  Transmission Date: 20150326
  Serious: Yes (Life-Threatening, Hospitalization)
  Sender: FDA-Public Use
  Company Number: FR-BEH-2014044993

PATIENT
  Age: 52 Year
  Sex: Male

DRUGS (1)
  1. PRIVIGEN [Suspect]
     Active Substance: HUMAN IMMUNOGLOBULIN G
     Indication: ACUTE POLYNEUROPATHY
     Dosage: THIRD TREATMENT; TREATED WITH PRIVIGEN SINCE MAY-2014.
     Route: 042
     Dates: start: 20140728, end: 20140731

REACTIONS (4)
  - Pulmonary embolism [Recovering/Resolving]
  - Chest pain [Recovering/Resolving]
  - Pain [Recovering/Resolving]
  - Pyrexia [Recovering/Resolving]

NARRATIVE: CASE EVENT DATE: 20140818
